FAERS Safety Report 21568477 (Version 3)
Quarter: 2022Q4

REPORT INFORMATION
  Report Type: Report from Study
  Country: US (occurrence: US)
  Receive Date: 20221108
  Receipt Date: 20221114
  Transmission Date: 20230112
  Serious: Yes (Hospitalization)
  Sender: FDA-Public Use
  Company Number: US-GILEAD-2022-0604041

PATIENT
  Age: 46 Year
  Sex: Female

DRUGS (8)
  1. AMBRISENTAN [Suspect]
     Active Substance: AMBRISENTAN
     Indication: Pulmonary hypertension
     Dosage: 10 MG, QD
     Route: 065
     Dates: start: 20180318
  2. AMBRISENTAN [Suspect]
     Active Substance: AMBRISENTAN
     Indication: Pulmonary arterial hypertension
     Dosage: 10 MG
     Route: 065
     Dates: start: 20130822
  3. TYLENOL [Concomitant]
     Active Substance: ACETAMINOPHEN
  4. SILDENAFIL [Concomitant]
     Active Substance: SILDENAFIL
  5. REVATIO [Concomitant]
     Active Substance: SILDENAFIL CITRATE
  6. FUROSEMIDE [Concomitant]
     Active Substance: FUROSEMIDE
  7. DIGOXIN [Concomitant]
     Active Substance: DIGOXIN
  8. COUMADIN [Concomitant]
     Active Substance: WARFARIN SODIUM

REACTIONS (2)
  - Oxygen saturation decreased [Unknown]
  - Product dose omission issue [Unknown]
